FAERS Safety Report 5933386-7 (Version None)
Quarter: 2008Q4

REPORT INFORMATION
  Report Type: 
  Country: None (occurrence: None)
  Receive Date: 20081028
  Receipt Date: 20081016
  Transmission Date: 20090506
  Serious: Yes (Hospitalization)
  Sender: FDA-Public Use
  Company Number: AU-PFIZER INC-2007054419

PATIENT
  Sex: Male

DRUGS (4)
  1. MARAVIROC [Suspect]
     Indication: HIV TEST POSITIVE
     Route: 048
     Dates: start: 20060130
  2. COMBIVIR [Suspect]
     Indication: HIV TEST POSITIVE
     Dosage: TEXT:300/600 MILLIGRAM
     Route: 048
     Dates: start: 20050714
  3. TRAMAL [Concomitant]
     Route: 048
     Dates: start: 20060621
  4. GABAPENTIN [Concomitant]
     Route: 048
     Dates: start: 20070622

REACTIONS (1)
  - MULTIPLE MYELOMA [None]
